FAERS Safety Report 11196087 (Version 1)
Quarter: 2015Q2

REPORT INFORMATION
  Report Type: Spontaneous
  Country: DE (occurrence: DE)
  Receive Date: 20150617
  Receipt Date: 20150617
  Transmission Date: 20150821
  Serious: Yes (Hospitalization)
  Sender: FDA-Public Use
  Company Number: DE-TEVA-567672GER

PATIENT
  Age: 26 Year
  Sex: Female
  Weight: 82 kg

DRUGS (1)
  1. CIPROFLOXACIN. [Suspect]
     Active Substance: CIPROFLOXACIN
     Indication: INFLAMMATION
     Dosage: 1000 MILLIGRAM DAILY;
     Route: 048
     Dates: start: 20150518

REACTIONS (11)
  - Hypoaesthesia [Unknown]
  - Tendon discomfort [Unknown]
  - Heart rate increased [Unknown]
  - Visual impairment [Unknown]
  - Blood pressure increased [Unknown]
  - Paraesthesia [Unknown]
  - Pain [Recovered/Resolved with Sequelae]
  - Muscle spasms [Unknown]
  - Respiratory distress [Unknown]
  - Panic attack [Unknown]
  - Tendon disorder [Unknown]

NARRATIVE: CASE EVENT DATE: 201505
